FAERS Safety Report 23440434 (Version 1)
Quarter: 2024Q1

REPORT INFORMATION
  Report Type: Report from Study
  Country: US (occurrence: US)
  Receive Date: 20240124
  Receipt Date: 20240124
  Transmission Date: 20240410
  Serious: Yes (Other)
  Sender: FDA-Public Use
  Company Number: US-ABBVIE-5596617

PATIENT
  Sex: Female

DRUGS (1)
  1. HUMIRA [Suspect]
     Active Substance: ADALIMUMAB
     Indication: Ankylosing spondylitis
     Dosage: FORM STRENGTH WAS 40 MILLIGRAM?CITRATE FREE
     Route: 058
     Dates: start: 20231219

REACTIONS (2)
  - Osteonecrosis [Not Recovered/Not Resolved]
  - Joint lock [Unknown]
